FAERS Safety Report 14709846 (Version 1)
Quarter: 2018Q2

REPORT INFORMATION
  Report Type: Report from Study
  Country: None (occurrence: JP)
  Receive Date: 20180403
  Receipt Date: 20180403
  Transmission Date: 20180711
  Serious: Yes (Hospitalization)
  Sender: FDA-Public Use
  Company Number: JP-ABBVIE-18S-087-2309805-00

PATIENT
  Age: 53 Year
  Sex: Male
  Weight: 80.6 kg

DRUGS (5)
  1. STRONGER NEO-MINOPHAGEN C, -P [Concomitant]
     Indication: HEPATITIS C
     Dosage: 3 TO 5 TIMES A WEEK
     Route: 040
     Dates: start: 20130509, end: 20150216
  2. URSODEOXYCHOLIC ACID [Concomitant]
     Active Substance: URSODIOL
     Indication: HEPATITIS C
     Route: 048
     Dates: start: 20120101
  3. RABEPRAZOLE SODIUM. [Concomitant]
     Active Substance: RABEPRAZOLE SODIUM
     Indication: GASTROOESOPHAGEAL REFLUX DISEASE
     Route: 048
     Dates: start: 20140623
  4. OLMESARTAN MEDOXOMIL. [Concomitant]
     Active Substance: OLMESARTAN MEDOXOMIL
     Indication: HYPERTENSION
     Route: 048
     Dates: start: 20120101
  5. VIEKIRAX [Suspect]
     Active Substance: OMBITASVIR\PARITAPREVIR\RITONAVIR
     Indication: CHRONIC HEPATITIS C
     Route: 048
     Dates: start: 20140415, end: 20140707

REACTIONS (1)
  - Laryngeal cancer [Recovered/Resolved]

NARRATIVE: CASE EVENT DATE: 20150216
